FAERS Safety Report 20016843 (Version 1)
Quarter: 2021Q4

REPORT INFORMATION
  Report Type: Spontaneous
  Country: US (occurrence: None)
  Receive Date: 20211105
  Receipt Date: 20211105
  Transmission Date: 20220304
  Serious: No
  Sender: FDA-Public Use
  Company Number: None

PATIENT
  Age: 61 Year
  Sex: Male
  Weight: 83.25 kg

DRUGS (5)
  1. EQUATE PAIN RELIEVING ULTRA STRENGTH [Suspect]
     Active Substance: CAMPHOR (SYNTHETIC)\MENTHOL\METHYL SALICYLATE
     Indication: Myalgia
     Dates: start: 20211105, end: 20211105
  2. FISH OIL [Concomitant]
     Active Substance: FISH OIL
  3. POTASSIUM [Concomitant]
     Active Substance: POTASSIUM
  4. CURCUMIN [Concomitant]
     Active Substance: CURCUMIN
  5. equate multivitamins [Concomitant]

REACTIONS (1)
  - Application site pain [None]

NARRATIVE: CASE EVENT DATE: 20211105
